FAERS Safety Report 9517791 (Version 2)
Quarter: 2013Q4

REPORT INFORMATION
  Report Type: Spontaneous
  Country: US (occurrence: US)
  Receive Date: 20130912
  Receipt Date: 20131129
  Transmission Date: 20140711
  Serious: Yes (Other)
  Sender: FDA-Public Use
  Company Number: US-009507513-1309USA000380

PATIENT
  Age: 28 Year
  Sex: Female
  Weight: 99.41 kg

DRUGS (2)
  1. NEXPLANON [Suspect]
     Indication: CONTRACEPTION
     Dosage: 1 DF, UNK
     Route: 059
     Dates: start: 20121217, end: 20130823
  2. IMPLANON [Concomitant]
     Dosage: 1 DF, UNK
     Route: 059
     Dates: start: 20091222, end: 20121217

REACTIONS (5)
  - Movement disorder [Not Recovered/Not Resolved]
  - Hypoaesthesia [Not Recovered/Not Resolved]
  - Paraesthesia [Not Recovered/Not Resolved]
  - Nerve compression [Unknown]
  - Pain in extremity [Unknown]
